FAERS Safety Report 6259809-4 (Version None)
Quarter: 2009Q3

REPORT INFORMATION
  Report Type: 
  Country: None (occurrence: None)
  Receive Date: 20090708
  Receipt Date: 20090702
  Transmission Date: 20100115
  Serious: Yes (Death, Life-Threatening, Hospitalization)
  Sender: FDA-Public Use
  Company Number: IT-CELGENEUS-083-50794-09070187

PATIENT
  Sex: Male
  Weight: 83 kg

DRUGS (7)
  1. VIDAZA [Suspect]
     Route: 058
     Dates: start: 20090504, end: 20090508
  2. KARVEA [Concomitant]
     Indication: HYPERTENSION
     Route: 048
  3. IGROTON [Concomitant]
     Indication: HYPERTENSION
     Route: 048
  4. MINIRIN [Concomitant]
     Indication: HYPOPITUITARISM
     Route: 055
  5. TORVAST [Concomitant]
     Route: 048
  6. EUTIROSE [Concomitant]
     Indication: HYPOPITUITARISM
     Route: 048
  7. CORTONE [Concomitant]
     Indication: HYPOPITUITARISM
     Route: 048

REACTIONS (2)
  - DEATH [None]
  - ILEUS [None]
